FAERS Safety Report 5744270-6 (Version None)
Quarter: 2008Q2

REPORT INFORMATION
  Report Type: 
  Country: None (occurrence: None)
  Receive Date: 20080520
  Receipt Date: 20080509
  Transmission Date: 20081010
  Serious: Yes (Hospitalization, Disabling, Other)
  Sender: FDA-Public Use
  Company Number: US-MERCK-0710USA04013

PATIENT
  Age: 57 Year
  Sex: Female

DRUGS (1)
  1. FOSAMAX [Suspect]
     Indication: OSTEOPOROSIS
     Route: 048
     Dates: start: 19990101, end: 20060101

REACTIONS (19)
  - ABDOMINAL PAIN [None]
  - ANKLE FRACTURE [None]
  - ANXIETY DISORDER [None]
  - ASTHMA [None]
  - BONE DISORDER [None]
  - BREAST MASS [None]
  - CHEST PAIN [None]
  - COMPLEX REGIONAL PAIN SYNDROME [None]
  - DENTAL CARIES [None]
  - DEPRESSION [None]
  - FALL [None]
  - ORAL DISORDER [None]
  - OSTEOMYELITIS [None]
  - OSTEONECROSIS [None]
  - PERIODONTITIS [None]
  - SINUS DISORDER [None]
  - TREATMENT NONCOMPLIANCE [None]
  - TYPE 2 DIABETES MELLITUS [None]
  - VOMITING [None]
